FAERS Safety Report 4358745-8 (Version None)
Quarter: 2004Q2

REPORT INFORMATION
  Report Type: 
  Country: None (occurrence: None)
  Receive Date: 20040511
  Receipt Date: 20040428
  Transmission Date: 20050107
  Serious: Yes (Death, Hospitalization, Other)
  Sender: FDA-Public Use
  Company Number: 2004028818

PATIENT
  Sex: Male

DRUGS (11)
  1. GLUCOTROL XL [Suspect]
     Indication: ILL-DEFINED DISORDER
     Dosage: 5 MG (1 IN 1 D), ORAL
     Route: 048
     Dates: start: 20040416, end: 20040416
  2. ATORVASTATIN CALCIUM [Concomitant]
  3. SERTRALINE HYDROCHLORIDE [Concomitant]
  4. LANSOPRAZOLE [Concomitant]
  5. PREDNISONE [Concomitant]
  6. ENALAPRIL MALEATE [Concomitant]
  7. ATENOLOL [Concomitant]
  8. VALSARTAN [Concomitant]
  9. CLOPIDOGREL BISULFATE [Concomitant]
  10. WARFARIN SODIUM [Concomitant]
  11. ASPIRIN [Concomitant]

REACTIONS (3)
  - COMA [None]
  - HYPOGLYCAEMIA [None]
  - MEDICATION ERROR [None]
